FAERS Safety Report 8207083-1 (Version None)
Quarter: 2012Q1

REPORT INFORMATION
  Report Type: 
  Country: None (occurrence: None)
  Receive Date: 20120314
  Receipt Date: 20120306
  Transmission Date: 20120608
  Serious: Yes (Other)
  Sender: FDA-Public Use
  Company Number: JP-JNJFOC-20120305510

PATIENT
  Age: 5 Decade
  Sex: Male

DRUGS (1)
  1. TRAMADOL HYDROCHLORIDE AND ACETAMINOPHEN [Suspect]
     Indication: PRODUCT USED FOR UNKNOWN INDICATION
     Dosage: 4 DFX 1 PER 1 DAY
     Route: 048
     Dates: start: 20111221, end: 20111222

REACTIONS (2)
  - FALL [None]
  - DIZZINESS [None]
